FAERS Safety Report 4937277-X (Version None)
Quarter: 2006Q1

REPORT INFORMATION
  Report Type: 
  Country: None (occurrence: None)
  Receive Date: 20060309
  Receipt Date: 20060224
  Transmission Date: 20060701
  Serious: Yes (Other)
  Sender: FDA-Public Use
  Company Number: PHBS2006BR02996

PATIENT
  Age: 35 Year
  Sex: Male
  Weight: 64 kg

DRUGS (6)
  1. TEGRETOL [Suspect]
     Dosage: UNK, QHS
     Route: 048
  2. ORAP [Concomitant]
  3. FENERGAN [Concomitant]
  4. FENOBARBITAL [Concomitant]
  5. TOMATO EXTRACT [Suspect]
  6. PRESERVATIVES [Suspect]

REACTIONS (5)
  - CHILLS [None]
  - CONVULSION [None]
  - FEELING ABNORMAL [None]
  - MEMORY IMPAIRMENT [None]
  - RETCHING [None]
